FAERS Safety Report 5678277-4 (Version None)
Quarter: 2008Q1

REPORT INFORMATION
  Report Type: 
  Country: None (occurrence: None)
  Receive Date: 20080319
  Receipt Date: 20080310
  Transmission Date: 20080703
  Serious: Yes (Other)
  Sender: FDA-Public Use
  Company Number: 2008AP000634

PATIENT
  Age: 50 Year
  Sex: Female

DRUGS (8)
  1. PAROXETINE HCL [Suspect]
     Indication: DEPRESSION
     Dosage: SEE IMAGE
     Route: 048
     Dates: start: 20000208
  2. PAROXETINE HCL [Suspect]
     Indication: DEPRESSION
     Dosage: SEE IMAGE
     Route: 048
     Dates: start: 20000417
  3. PAROXETINE HCL [Suspect]
     Indication: DEPRESSION
     Dosage: SEE IMAGE
     Route: 048
     Dates: start: 20020617
  4. PAROXETINE HCL [Suspect]
     Indication: DEPRESSION
     Dosage: SEE IMAGE
     Route: 048
     Dates: start: 20021011
  5. PAROXETINE HCL [Suspect]
     Indication: DEPRESSION
     Dosage: SEE IMAGE
     Route: 048
     Dates: start: 20021105
  6. PAROXETINE HCL [Suspect]
     Indication: DEPRESSION
     Dosage: SEE IMAGE
     Route: 048
     Dates: start: 20021106
  7. CODEINE PHOSPHATE (CODEINE PHOSPHATE) [Concomitant]
  8. ACETAMINOPHEN [Concomitant]

REACTIONS (14)
  - ADVERSE DRUG REACTION [None]
  - DISTURBANCE IN ATTENTION [None]
  - DIZZINESS [None]
  - DRUG WITHDRAWAL SYNDROME [None]
  - FATIGUE [None]
  - HYPERHIDROSIS [None]
  - MEMORY IMPAIRMENT [None]
  - NAUSEA [None]
  - NIGHTMARE [None]
  - PARAESTHESIA [None]
  - SUICIDAL IDEATION [None]
  - TREMOR [None]
  - VERTIGO [None]
  - VISUAL DISTURBANCE [None]
